FAERS Safety Report 12287096 (Version 1)
Quarter: 2016Q2

REPORT INFORMATION
  Report Type: Spontaneous
  Country: GB (occurrence: GB)
  Receive Date: 20160420
  Receipt Date: 20160420
  Transmission Date: 20160815
  Serious: Yes (Hospitalization, Other)
  Sender: FDA-Public Use
  Company Number: GB-HQ SPECIALTY-GB-2016INT000182

PATIENT
  Age: 73 Year
  Sex: Female
  Weight: 44 kg

DRUGS (6)
  1. ADALAT [Concomitant]
     Active Substance: NIFEDIPINE
     Indication: HYPERTENSION
     Dosage: 40 MG (20 MG, 2 IN 1 D)
     Dates: start: 1966
  2. ENBREL [Suspect]
     Active Substance: ETANERCEPT
     Indication: RHEUMATOID ARTHRITIS
     Dosage: 50 MG, 1 W
     Route: 058
     Dates: start: 20120326, end: 201511
  3. LANSOPRAZOLE. [Concomitant]
     Active Substance: LANSOPRAZOLE
     Indication: GASTROINTESTINAL DISORDER
     Dosage: 15 MG, UNK
     Dates: start: 2005
  4. ALENDRONATE [Concomitant]
     Active Substance: ALENDRONATE SODIUM
     Indication: OSTEOPOROSIS
     Dosage: 10 MG (70 MG, 1 IN 1 W)
     Dates: start: 2001
  5. URSODEOXYCHOLIC ACID [Concomitant]
     Active Substance: URSODIOL
     Indication: BILIARY CIRRHOSIS PRIMARY
     Dosage: 900 MG (150 MG, 6 IN 1 D)
     Dates: start: 1999
  6. METHOTREXATE SODIUM. [Suspect]
     Active Substance: METHOTREXATE SODIUM
     Indication: RHEUMATOID ARTHRITIS
     Dosage: 2.8571 MG (20 MG, 1 IN 1 W)
     Route: 048
     Dates: start: 2000, end: 201511

REACTIONS (5)
  - Urinary tract infection [Recovered/Resolved]
  - Herpes ophthalmic [Not Recovered/Not Resolved]
  - Immune system disorder [Unknown]
  - Infection [Unknown]
  - Ophthalmic herpes simplex [Not Recovered/Not Resolved]

NARRATIVE: CASE EVENT DATE: 2006
